FAERS Safety Report 9984555 (Version 1)
Quarter: 2014Q1

REPORT INFORMATION
  Report Type: Spontaneous
  Country: US (occurrence: US)
  Receive Date: 20140304
  Receipt Date: 20140304
  Transmission Date: 20141002
  Serious: No
  Sender: FDA-Public Use
  Company Number: US-ABBVIE-13P-163-1083927-00

PATIENT
  Age: 63 Year
  Sex: Male
  Weight: 98.52 kg

DRUGS (8)
  1. HUMIRA [Suspect]
     Indication: RHEUMATOID ARTHRITIS
     Dates: start: 20130426, end: 20130426
  2. HUMIRA [Suspect]
     Indication: PSORIASIS
  3. HUMIRA [Suspect]
     Indication: PSORIATIC ARTHROPATHY
  4. BENECAR [Concomitant]
     Indication: BLOOD PRESSURE
  5. GABAPENTIN [Concomitant]
     Indication: HEADACHE
  6. FLUOXETINE [Concomitant]
     Indication: DEPRESSION
  7. CLOBETASOL [Concomitant]
     Indication: PSORIASIS
  8. FLUOCINONIDE [Concomitant]
     Indication: PSORIASIS

REACTIONS (2)
  - Chest pain [Unknown]
  - Cardiac disorder [Unknown]
